FAERS Safety Report 5060694-7 (Version None)
Quarter: 2006Q3

REPORT INFORMATION
  Report Type: 
  Country: None (occurrence: None)
  Receive Date: 20060720
  Receipt Date: 20060710
  Transmission Date: 20061208
  Serious: Yes (Other)
  Sender: FDA-Public Use
  Company Number: 2006086871

PATIENT
  Sex: Female

DRUGS (1)
  1. BEXTRA [Suspect]
     Indication: MUSCULOSKELETAL PAIN
     Dosage: 20 MG (20 MG, 1 IN 1 D)
     Dates: start: 20021226, end: 20040706

REACTIONS (1)
  - CEREBROVASCULAR ACCIDENT [None]
